FAERS Safety Report 7405404-0 (Version None)
Quarter: 2011Q2

REPORT INFORMATION
  Report Type: 
  Country: None (occurrence: None)
  Receive Date: 20110401
  Receipt Date: 20110317
  Transmission Date: 20111010
  Serious: Yes (Hospitalization)
  Sender: FDA-Public Use
  Company Number: M1101411

PATIENT
  Age: 86 Year
  Sex: Male

DRUGS (12)
  1. METOPROLOL (METOPROLOL) [Concomitant]
  2. UNSPECIFIED POTASSIUM PRODUCT (POTASSIUM) [Concomitant]
  3. PACERONE [Suspect]
     Indication: ATRIAL FIBRILLATION
     Dosage: 1 IN 1 D, ORAL
     Route: 048
     Dates: end: 20100201
  4. SYNTHROID [Concomitant]
  5. ZOXOR (SIMVASTATIN) [Concomitant]
  6. VALSARTAN [Concomitant]
  7. ISOSORBIDE (ISOSORBIDE) [Concomitant]
  8. TERAZOSIN HCL [Concomitant]
  9. DIGOXIN [Concomitant]
  10. LASIX [Concomitant]
  11. COUMADIN [Concomitant]
  12. UNSPECIFIED IRON PRODUCT (IRON) [Concomitant]

REACTIONS (3)
  - FLUID RETENTION [None]
  - CHEST PAIN [None]
  - DYSPNOEA [None]
